FAERS Safety Report 7990611-9 (Version None)
Quarter: 2011Q4

REPORT INFORMATION
  Report Type: 
  Country: None (occurrence: None)
  Receive Date: 20111219
  Receipt Date: 20110818
  Transmission Date: 20120403
  Serious: No
  Sender: FDA-Public Use
  Company Number: US-ASTRAZENECA-2011SE50029

PATIENT

DRUGS (13)
  1. ATENOLOL [Concomitant]
  2. CRESTOR [Suspect]
     Route: 048
  3. HYDROCHLOROTHIAZIDE [Concomitant]
  4. PLAVIX [Concomitant]
  5. FUROSEMIDE [Concomitant]
  6. CLONIDINE [Concomitant]
  7. POTASSIUM CL [Concomitant]
  8. PREDNISONE TAB [Concomitant]
  9. EXFORGE [Concomitant]
  10. AZITHROMYCIN [Concomitant]
  11. LEVAQUIN [Concomitant]
  12. NITROGLYCERIN [Concomitant]
  13. PANTOPRAZOLE [Concomitant]

REACTIONS (2)
  - CHEST PAIN [None]
  - COUGH [None]
